FAERS Safety Report 4973905-0 (Version None)
Quarter: 2006Q2

REPORT INFORMATION
  Report Type: 
  Country: None (occurrence: None)
  Receive Date: 20060417
  Receipt Date: 20060410
  Transmission Date: 20061013
  Serious: Yes (Death, Hospitalization)
  Sender: FDA-Public Use
  Company Number: US-AVENTIS-200613369US

PATIENT
  Sex: Female

DRUGS (2)
  1. LOVENOX [Suspect]
     Indication: MYOCARDIAL INFARCTION
     Dosage: DOSE: UNK
  2. DOPAMINE [Concomitant]
     Dosage: DOSE: RENAL DOSING

REACTIONS (3)
  - DEATH [None]
  - RETROPERITONEAL HAEMORRHAGE [None]
  - SEPSIS [None]
